FAERS Safety Report 5065020-5 (Version None)
Quarter: 2006Q3

REPORT INFORMATION
  Report Type: 
  Country: None (occurrence: None)
  Receive Date: 20060728
  Receipt Date: 20060501
  Transmission Date: 20061208
  Serious: Yes (Life-Threatening, Hospitalization)
  Sender: FDA-Public Use
  Company Number: US-ABBOTT-06P-163-0332194-00

PATIENT
  Sex: Female
  Weight: 89.438 kg

DRUGS (25)
  1. WARFARIN SODIUM [Suspect]
     Indication: DRUG USE FOR UNKNOWN INDICATION
     Route: 048
     Dates: start: 20051001
  2. RYTHMOL SR [Suspect]
     Indication: ATRIAL FIBRILLATION
     Route: 048
     Dates: start: 20060404, end: 20060418
  3. RYTHMOL SR [Suspect]
     Route: 048
     Dates: start: 20060419, end: 20060501
  4. RYTHMOL SR [Suspect]
     Route: 048
     Dates: start: 20060502
  5. COUMADIN [Suspect]
     Indication: DRUG USE FOR UNKNOWN INDICATION
     Dates: start: 20060301, end: 20060407
  6. COUMADIN [Suspect]
  7. COUMADIN [Suspect]
  8. BACTRIM [Suspect]
     Indication: DRUG USE FOR UNKNOWN INDICATION
     Dates: start: 20060407
  9. SPIRONOLACTONE [Suspect]
     Indication: HYPERTENSION
     Route: 048
     Dates: start: 19660103
  10. SPIRONOLACTONE [Suspect]
     Indication: CARDIAC FAILURE CONGESTIVE
     Route: 048
     Dates: end: 20060515
  11. SPIRONOLACTONE [Suspect]
     Indication: HYPOKALAEMIA
  12. QUININE SULFATE [Concomitant]
     Indication: MUSCLE SPASMS
     Dates: start: 19760102
  13. THYROID TAB [Concomitant]
     Indication: HYPOTHYROIDISM
     Dates: start: 19660103
  14. ACETYLSALICYLIC ACID SRT [Concomitant]
     Indication: CEREBROVASCULAR ACCIDENT
     Dates: start: 20051009
  15. ESTROGENS CONJUGATED [Concomitant]
     Indication: HORMONE REPLACEMENT THERAPY
     Dates: start: 19760102
  16. FUROSEMIDE [Concomitant]
     Indication: HYPERTENSION
     Dates: start: 19660103
  17. FUROSEMIDE [Concomitant]
     Indication: DRUG USE FOR UNKNOWN INDICATION
  18. PREDNISONE TAB [Concomitant]
     Indication: FIBROMYALGIA
     Dates: start: 19910301
  19. PREDNISONE TAB [Concomitant]
     Indication: DRUG USE FOR UNKNOWN INDICATION
  20. GLIPIZIDE [Concomitant]
     Indication: DIABETES MELLITUS
     Dates: start: 19960301
  21. GLIPIZIDE [Concomitant]
  22. CEFAZOLIN SODIUM [Concomitant]
     Indication: DRUG USE FOR UNKNOWN INDICATION
  23. CLINDAMYCIN [Concomitant]
     Indication: DRUG USE FOR UNKNOWN INDICATION
  24. L-THYROXINE [Concomitant]
     Indication: DRUG USE FOR UNKNOWN INDICATION
  25. SULFADIAZINE SILVER [Concomitant]
     Indication: DRUG USE FOR UNKNOWN INDICATION

REACTIONS (14)
  - ATRIAL FIBRILLATION [None]
  - BLOOD CREATININE INCREASED [None]
  - BLOOD GLUCOSE DECREASED [None]
  - BLOOD POTASSIUM INCREASED [None]
  - BLOOD SODIUM DECREASED [None]
  - BLOOD UREA INCREASED [None]
  - CARDIAC FAILURE CONGESTIVE [None]
  - CELLULITIS [None]
  - ECCHYMOSIS [None]
  - HYPERKALAEMIA [None]
  - INTERNATIONAL NORMALISED RATIO INCREASED [None]
  - LIVER FUNCTION TEST ABNORMAL [None]
  - PROTHROMBIN TIME PROLONGED [None]
  - SKIN ULCER [None]
